FAERS Safety Report 9448026 (Version 2)
Quarter: 2013Q3

REPORT INFORMATION
  Report Type: Spontaneous
  Country: JP (occurrence: JP)
  Receive Date: 20130808
  Receipt Date: 20130916
  Transmission Date: 20140515
  Serious: Yes (Death, Hospitalization)
  Sender: FDA-Public Use
  Company Number: JP-ROCHE-1259470

PATIENT
  Sex: Female
  Weight: 52 kg

DRUGS (6)
  1. ACTEMRA [Suspect]
     Indication: RHEUMATOID ARTHRITIS
     Route: 041
     Dates: end: 20110606
  2. ACTEMRA [Suspect]
     Indication: RHEUMATOID ARTHRITIS
     Route: 041
     Dates: start: 20130204, end: 20130528
  3. ACTEMRA [Suspect]
     Route: 041
     Dates: start: 20130730
  4. PREDNISOLONE [Concomitant]
     Indication: RHEUMATOID ARTHRITIS
     Route: 048
  5. PARIET [Concomitant]
     Indication: PROPHYLAXIS
     Route: 048
  6. PROGRAF [Concomitant]
     Indication: RHEUMATOID ARTHRITIS
     Route: 048

REACTIONS (3)
  - Death [Fatal]
  - Suicide attempt [Recovered/Resolved]
  - Cough [Unknown]
